FAERS Safety Report 4360298-5 (Version None)
Quarter: 2004Q2

REPORT INFORMATION
  Report Type: 
  Country: None (occurrence: None)
  Receive Date: 20040519
  Receipt Date: 20040510
  Transmission Date: 20050107
  Serious: Yes (Hospitalization)
  Sender: FDA-Public Use
  Company Number: US-JNJFOC-20040502001

PATIENT
  Sex: Female
  Weight: 58.51 kg

DRUGS (15)
  1. REMICADE [Suspect]
     Dosage: 3 VIALS
     Route: 042
  2. REMICADE [Suspect]
     Indication: RHEUMATOID ARTHRITIS
     Dosage: 3 VIALS
     Route: 042
  3. METHOTREXATE [Concomitant]
  4. PLAQUENIL [Concomitant]
  5. PREDNISONE [Concomitant]
  6. TOPROL-XL [Concomitant]
  7. DILTIAZEM [Concomitant]
     Dosage: 60 MG, HALF TABLET TWICE DAILY
  8. TYLENOL W/ CODEINE [Concomitant]
  9. TYLENOL W/ CODEINE [Concomitant]
  10. VALIUM [Concomitant]
  11. ROBAXIN [Concomitant]
  12. IRON [Concomitant]
  13. COMPAZINE [Concomitant]
     Indication: DIZZINESS
  14. ANTIBIOTIC [Concomitant]
     Indication: PROPHYLAXIS
  15. LIPITOR [Concomitant]

REACTIONS (11)
  - CHEST PAIN [None]
  - DEPRESSION [None]
  - HERPES ZOSTER [None]
  - MOUTH HAEMORRHAGE [None]
  - PYREXIA [None]
  - RED BLOOD CELL COUNT DECREASED [None]
  - TREMOR [None]
  - URINARY INCONTINENCE [None]
  - URINARY TRACT INFECTION [None]
  - VOMITING [None]
  - WHITE BLOOD CELL COUNT DECREASED [None]
